FAERS Safety Report 23535251 (Version 1)
Quarter: 2024Q1

REPORT INFORMATION
  Report Type: Spontaneous
  Country: DE (occurrence: DE)
  Receive Date: 20240218
  Receipt Date: 20240218
  Transmission Date: 20240409
  Serious: Yes (Other)
  Sender: FDA-Public Use
  Company Number: DE-ZAMBON-202400372DEU

PATIENT
  Age: 71 Year
  Sex: Male
  Weight: 70 kg

DRUGS (8)
  1. XADAGO [Suspect]
     Active Substance: SAFINAMIDE MESYLATE
     Indication: Product used for unknown indication
     Dosage: 100 MG, SINGLE
     Route: 048
     Dates: start: 20240204, end: 20240204
  2. XADAGO [Suspect]
     Active Substance: SAFINAMIDE MESYLATE
     Dosage: 50 MG
     Route: 048
  3. PRUCALOPRIDE [Suspect]
     Active Substance: PRUCALOPRIDE
     Indication: Product used for unknown indication
     Dosage: 1 MG, SINGLE
     Route: 048
     Dates: start: 20240204, end: 20240204
  4. CARBIDOPA\LEVODOPA [Suspect]
     Active Substance: CARBIDOPA\LEVODOPA
     Indication: Product used for unknown indication
     Dosage: EACH DF CONTAINS 100 MG LEVODOPA/ 25 MG CARBIDOPA
     Route: 048
     Dates: start: 20240204, end: 20240204
  5. RIVAROXABAN [Suspect]
     Active Substance: RIVAROXABAN
     Indication: Product used for unknown indication
     Dosage: 20 MG, SINGLE
     Route: 048
     Dates: start: 20240204, end: 20240204
  6. EZETIMIBE [Suspect]
     Active Substance: EZETIMIBE
     Indication: Product used for unknown indication
     Dosage: 10 MG
     Route: 048
     Dates: start: 20240204, end: 20240204
  7. METFORMIN [Suspect]
     Active Substance: METFORMIN HYDROCHLORIDE
     Indication: Product used for unknown indication
     Dosage: 850 MG, (1700 MG)
     Route: 048
     Dates: start: 20240204, end: 20240204
  8. SITAGLIPTIN [Suspect]
     Active Substance: SITAGLIPTIN
     Indication: Product used for unknown indication
     Dosage: 50 MG
     Route: 048
     Dates: start: 20240204, end: 20240204

REACTIONS (5)
  - Delirium tremens [Recovering/Resolving]
  - Disorientation [Recovering/Resolving]
  - Tachycardia [Recovering/Resolving]
  - Hallucination [Recovering/Resolving]
  - Duplicate therapy error [Unknown]

NARRATIVE: CASE EVENT DATE: 20240204
